FAERS Safety Report 9031577 (Version 2)
Quarter: 2013Q1

REPORT INFORMATION
  Report Type: Report from Study
  Country: FR (occurrence: FR)
  Receive Date: 20130124
  Receipt Date: 20130125
  Transmission Date: 20140127
  Serious: Yes (Hospitalization)
  Sender: FDA-Public Use
  Company Number: FR-ROCHE-1180787

PATIENT
  Age: 45 Year
  Sex: Male
  Weight: 61 kg

DRUGS (11)
  1. PEG-INTERFERON ALFA 2A [Suspect]
     Indication: CHRONIC HEPATITIS C
     Route: 058
     Dates: start: 20120709
  2. RIBAVIRIN [Suspect]
     Indication: CHRONIC HEPATITIS C
     Route: 048
     Dates: start: 20120709
  3. TRUVADA [Concomitant]
     Indication: HIV INFECTION
     Dosage: 200/245 MG
     Route: 048
     Dates: start: 20090204
  4. ISENTRESS [Concomitant]
     Indication: HIV INFECTION
     Route: 048
     Dates: start: 20120709
  5. METHADONE [Concomitant]
     Route: 048
  6. NEORECORMON [Concomitant]
     Indication: ANAEMIA
     Dosage: 3000 UI
     Route: 058
     Dates: start: 20121002
  7. IMOVANE [Concomitant]
     Indication: DEPRESSION
     Route: 048
     Dates: start: 20120716
  8. VENTOLINE [Concomitant]
     Indication: CHRONIC OBSTRUCTIVE PULMONARY DISEASE
     Dosage: AS NEEDED
     Route: 065
     Dates: start: 2012
  9. SYMBICORT [Concomitant]
     Indication: CHRONIC OBSTRUCTIVE PULMONARY DISEASE
     Route: 065
     Dates: start: 2012
  10. ONBREZ [Concomitant]
     Indication: CHRONIC OBSTRUCTIVE PULMONARY DISEASE
     Route: 065
     Dates: start: 2012
  11. MOPRAL (FRANCE) [Concomitant]
     Indication: ABDOMINAL PAIN
     Route: 065
     Dates: start: 20120709, end: 20121207

REACTIONS (1)
  - General physical health deterioration [Recovered/Resolved]
